FAERS Safety Report 22184937 (Version 4)
Quarter: 2023Q2

REPORT INFORMATION
  Report Type: Report from Study
  Country: US (occurrence: US)
  Receive Date: 20230407
  Receipt Date: 20230523
  Transmission Date: 20230722
  Serious: Yes (Other)
  Sender: FDA-Public Use
  Company Number: US-ABBVIE-4300442

PATIENT
  Age: 75 Year
  Sex: Female

DRUGS (5)
  1. IMBRUVICA [Suspect]
     Active Substance: IBRUTINIB
     Indication: Chronic lymphocytic leukaemia
     Dosage: LAST ADMIN DATE-JAN 2023, EVENT START DATE-2023?2 CAPSULE PER DAY
     Route: 048
     Dates: start: 20230118
  2. IMBRUVICA [Suspect]
     Active Substance: IBRUTINIB
     Indication: Chronic lymphocytic leukaemia
     Route: 048
     Dates: start: 20221101
  3. IMBRUVICA [Suspect]
     Active Substance: IBRUTINIB
     Indication: Chronic lymphocytic leukaemia
     Route: 048
     Dates: start: 202301
  4. CYCLOBENZAPRINE [Concomitant]
     Active Substance: CYCLOBENZAPRINE
     Indication: Myalgia
  5. IMBRUVICA [Suspect]
     Active Substance: IBRUTINIB
     Indication: Chronic lymphocytic leukaemia
     Dosage: END DATE IN JAN 2023
     Route: 048
     Dates: start: 20230110

REACTIONS (25)
  - Spinal fracture [Unknown]
  - Hypertension [Unknown]
  - Back pain [Recovering/Resolving]
  - Muscle disorder [Unknown]
  - Bone disorder [Unknown]
  - Arthropathy [Unknown]
  - Back pain [Recovering/Resolving]
  - Lumbar vertebral fracture [Unknown]
  - Myalgia [Unknown]
  - Gait inability [Recovering/Resolving]
  - Abdominal distension [Unknown]
  - Arthralgia [Unknown]
  - Blood pressure fluctuation [Unknown]
  - Bone pain [Unknown]
  - Dry mouth [Unknown]
  - Arthropathy [Unknown]
  - Hip fracture [Unknown]
  - Joint noise [Unknown]
  - Back injury [Unknown]
  - Peripheral swelling [Recovering/Resolving]
  - Weight increased [Unknown]
  - Pain [Unknown]
  - Decreased appetite [Unknown]
  - Spinal cord injury [Unknown]
  - Spinal fracture [Recovering/Resolving]

NARRATIVE: CASE EVENT DATE: 20230203
